FAERS Safety Report 8408282 (Version 2)
Quarter: 2013Q2

REPORT INFORMATION
  Report Type: Spontaneous
  Country: US (occurrence: None)
  Receive Date: 20111227
  Receipt Date: 20120426
  Transmission Date: 20140414
  Serious: Yes (Other)
  Sender: FDA-Public Use
  Company Number: PHEH2011US06919

PATIENT
  Age: 50 Year
  Sex: Male
  Weight: 141.9 kg

DRUGS (1)
  1. GILENYA [Suspect]
     Indication: MULTIPLE SCLEROSIS
     Dosage: 0.5 MG, DAILY, ORAL
     Route: 048
     Dates: start: 201104

REACTIONS (6)
  - FEELING COLD [None]
  - CONSTIPATION [None]
  - HEADACHE [None]
  - DIARRHOEA [None]
  - BACK PAIN [None]
  - COUGH [None]
